FAERS Safety Report 11812264 (Version 1)
Quarter: 2015Q4

REPORT INFORMATION
  Report Type: Not Available
  Country: US (occurrence: US)
  Receive Date: 20151208
  Receipt Date: 20151208
  Transmission Date: 20160305
  Serious: Yes (Other)
  Sender: FDA-Public Use
  Company Number: US-ANIPHARMA-2015-US-000653

PATIENT
  Age: 69 Year
  Sex: Male

DRUGS (13)
  1. HYDROMORPHONE [Concomitant]
     Active Substance: HYDROMORPHONE
  2. ONDANSETRON [Concomitant]
     Active Substance: ONDANSETRON
  3. LEVOFLOXACIN. [Suspect]
     Active Substance: LEVOFLOXACIN
  4. VANCOCIN [Suspect]
     Active Substance: VANCOMYCIN HYDROCHLORIDE
  5. PANTOPRAZOLE [Concomitant]
     Active Substance: PANTOPRAZOLE SODIUM
  6. BACITRACIN. [Concomitant]
     Active Substance: BACITRACIN
     Route: 061
  7. FONDAPARINUX [Concomitant]
     Active Substance: FONDAPARINUX
  8. DUTASTERIDE. [Concomitant]
     Active Substance: DUTASTERIDE
  9. PIPERACILLIN PLUS TAZOBACTAM [Suspect]
     Active Substance: PIPERACILLIN SODIUM\TAZOBACTAM SODIUM
  10. BICLUTAMIDE [Concomitant]
     Active Substance: BICALUTAMIDE
  11. BENZONATATE. [Concomitant]
     Active Substance: BENZONATATE
  12. ASPIRIN. [Concomitant]
     Active Substance: ASPIRIN
  13. METHYLPREDNISOLONE. [Concomitant]
     Active Substance: METHYLPREDNISOLONE

REACTIONS (1)
  - Linear IgA disease [Unknown]
